FAERS Safety Report 4374638-4 (Version None)
Quarter: 2004Q2

REPORT INFORMATION
  Report Type: 
  Country: None (occurrence: None)
  Receive Date: 20040609
  Receipt Date: 20030331
  Transmission Date: 20050107
  Serious: Yes (Hospitalization, Other)
  Sender: FDA-Public Use
  Company Number: JP-GLAXOSMITHKLINE-B0296470A

PATIENT
  Age: 83 Year
  Sex: Female
  Weight: 50 kg

DRUGS (12)
  1. ZANTAC [Suspect]
     Indication: GASTRIC ULCER
     Dosage: 75MG TWICE PER DAY
     Route: 048
     Dates: start: 20030212, end: 20030313
  2. METICRANE [Suspect]
     Indication: HYPERTENSION
     Dosage: 150MG PER DAY
     Route: 048
     Dates: start: 20030225, end: 20030313
  3. MOBIC [Concomitant]
     Indication: OSTEOPOROSIS
     Dosage: 10MG PER DAY
     Route: 048
     Dates: start: 20020402, end: 20030313
  4. ADALAT [Concomitant]
     Indication: HYPERTENSION
     Dosage: 20MG PER DAY
     Route: 048
     Dates: start: 20020611, end: 20030313
  5. MICARDIS [Concomitant]
     Indication: HYPERTENSION
     Dosage: 40MG PER DAY
     Route: 048
     Dates: start: 20030212
  6. GANATON [Concomitant]
     Indication: GASTRITIS
     Dosage: 100MG PER DAY
     Route: 048
     Dates: start: 20010614, end: 20030313
  7. DEPAS [Concomitant]
     Indication: ANXIETY DISORDER
     Dosage: 1.5MG PER DAY
     Route: 048
     Dates: start: 19990914
  8. MINZAIN [Concomitant]
     Indication: INSOMNIA
     Dosage: .25MG PER DAY
     Route: 048
     Dates: start: 19990604
  9. FERROMIA (JAPAN) [Concomitant]
     Indication: IRON DEFICIENCY ANAEMIA
     Dosage: 100MG PER DAY
     Route: 048
     Dates: start: 20021220
  10. OMEPRAZOLE [Concomitant]
     Indication: GASTRIC ULCER
     Dosage: 20MG PER DAY
     Route: 048
     Dates: start: 20021220, end: 20030212
  11. DIOVAN [Concomitant]
     Indication: HYPERTENSION
     Dosage: 80MG PER DAY
     Route: 048
     Dates: start: 20020528, end: 20030212
  12. BUNAZOSIN [Concomitant]
     Indication: HYPERTENSION
     Dosage: 6MG PER DAY
     Route: 048
     Dates: start: 20030314

REACTIONS (6)
  - ABDOMINAL PAIN UPPER [None]
  - ANOREXIA [None]
  - BLOOD IMMUNOGLOBULIN G INCREASED [None]
  - BLOOD PRESSURE INCREASED [None]
  - BLOOD UREA INCREASED [None]
  - THROMBOCYTOPENIA [None]
